FAERS Safety Report 18790006 (Version 1)
Quarter: 2021Q1

REPORT INFORMATION
  Report Type: Other
  Country: US (occurrence: US)
  Receive Date: 20210125
  Receipt Date: 20210125
  Transmission Date: 20210419
  Serious: No
  Sender: FDA-Public Use
  Company Number: US-ACORDA-ACO_167181_2020

PATIENT
  Age: 58 Year
  Sex: Female

DRUGS (7)
  1. ADVIL [Concomitant]
     Active Substance: IBUPROFEN
     Indication: PRODUCT USED FOR UNKNOWN INDICATION
     Dosage: 440 MILLIGRAM
     Route: 048
     Dates: start: 20010101
  2. VAGIFEM [Concomitant]
     Active Substance: ESTRADIOL
     Indication: PRODUCT USED FOR UNKNOWN INDICATION
     Dosage: 10 MICROGRAM, 2X/WK
     Route: 067
     Dates: start: 20010101
  3. PLEGRIDY [Suspect]
     Active Substance: PEGINTERFERON BETA-1A
     Dosage: ONCE
     Route: 065
     Dates: start: 20160520, end: 20160520
  4. PLEGRIDY [Suspect]
     Active Substance: PEGINTERFERON BETA-1A
     Dosage: 125 MICROGRAM, 1 IN 14 DAYS
     Route: 065
     Dates: start: 20160603
  5. AMPYRA [Suspect]
     Active Substance: DALFAMPRIDINE
     Indication: MULTIPLE SCLEROSIS
     Dosage: 10 MILLIGRAM, BID
     Route: 048
     Dates: start: 20170501
  6. PLEGRIDY [Suspect]
     Active Substance: PEGINTERFERON BETA-1A
     Indication: MULTIPLE SCLEROSIS
     Dosage: ONCE
     Route: 065
     Dates: start: 20160506, end: 20160506
  7. MULTIVITAMIN [Concomitant]
     Active Substance: VITAMINS
     Indication: PRODUCT USED FOR UNKNOWN INDICATION
     Dosage: 1 TABLET DAILY
     Route: 048

REACTIONS (1)
  - Wrist fracture [Recovered/Resolved]

NARRATIVE: CASE EVENT DATE: 20190507
